FAERS Safety Report 16814423 (Version 1)
Quarter: 2019Q3

REPORT INFORMATION
  Report Type: Report from Study
  Country: DE (occurrence: DE)
  Receive Date: 20190917
  Receipt Date: 20190917
  Transmission Date: 20191005
  Serious: Yes (Other)
  Sender: FDA-Public Use
  Company Number: DE-AMGEN-DEUSL2019150048

PATIENT
  Age: 22 Year
  Sex: Female

DRUGS (1)
  1. SINGLE DOSE PREFILLED AUTOINJECTOR(AMGEVITA) [Suspect]
     Active Substance: ADALIMUMAB
     Indication: CROHN^S DISEASE
     Dosage: UNK
     Route: 065

REACTIONS (3)
  - Anal abscess [Unknown]
  - Psoriasis [Not Recovered/Not Resolved]
  - Abscess intestinal [Unknown]

NARRATIVE: CASE EVENT DATE: 201804
